FAERS Safety Report 24838817 (Version 2)
Quarter: 2025Q2

REPORT INFORMATION
  Report Type: Spontaneous
  Country: US (occurrence: US)
  Receive Date: 20250113
  Receipt Date: 20250418
  Transmission Date: 20250716
  Serious: Yes (Other)
  Sender: ABBVIE
  Company Number: US-ABBVIE-6082092

PATIENT
  Age: 38 Year
  Sex: Female

DRUGS (1)
  1. CREON [Suspect]
     Active Substance: PANCRELIPASE AMYLASE\PANCRELIPASE LIPASE\PANCRELIPASE PROTEASE
     Indication: Product used for unknown indication
     Route: 048

REACTIONS (9)
  - Colectomy [Unknown]
  - Gastroenteritis eosinophilic [Unknown]
  - Spleen disorder [Unknown]
  - Gastroenteritis [Unknown]
  - Irritable bowel syndrome [Unknown]
  - Melanocytic naevus [Unknown]
  - Dyspepsia [Unknown]
  - Sleep disorder [Unknown]
  - Anaemia vitamin B12 deficiency [Unknown]

NARRATIVE: CASE EVENT DATE: 20240222
